FAERS Safety Report 5577056-6 (Version None)
Quarter: 2007Q4

REPORT INFORMATION
  Report Type: 
  Country: None (occurrence: None)
  Receive Date: 20071228
  Receipt Date: 20071212
  Transmission Date: 20080405
  Serious: Yes (Other)
  Sender: FDA-Public Use
  Company Number: JP-BOEHRINGER INGELHEIM PHARMACEUTICALS, INC.-2007-BP-26077NB

PATIENT
  Sex: Male

DRUGS (3)
  1. MOBIC [Suspect]
     Indication: THORACIC VERTEBRAL FRACTURE
     Route: 048
     Dates: start: 20060701
  2. LOXOPROFEN SODIUM [Suspect]
     Indication: THORACIC VERTEBRAL FRACTURE
     Route: 048
     Dates: start: 20060701
  3. GEMCITABINE HCL [Concomitant]
     Indication: BILE DUCT CANCER STAGE III
     Route: 042

REACTIONS (2)
  - ILEUS [None]
  - LARGE INTESTINAL ULCER [None]
